FAERS Safety Report 12261411 (Version 1)
Quarter: 2016Q2

REPORT INFORMATION
  Report Type: Spontaneous
  Country: US (occurrence: US)
  Receive Date: 20160412
  Receipt Date: 20160412
  Transmission Date: 20160815
  Serious: No
  Sender: FDA-Public Use
  Company Number: US-B.I. PHARMACEUTICALS,INC./RIDGEFIELD-2016-BI-19747BP

PATIENT
  Sex: Male
  Weight: 91 kg

DRUGS (3)
  1. COMBIVENT [Suspect]
     Active Substance: ALBUTEROL SULFATE\IPRATROPIUM BROMIDE
     Indication: ASPIRIN-EXACERBATED RESPIRATORY DISEASE
     Dosage: DOSE PER APPLICATION: 18 MCG / 103 MCG; FORMULATION: INHALATION AEROSOL
     Route: 055
     Dates: start: 2004, end: 2011
  2. COMBIVENT [Suspect]
     Active Substance: ALBUTEROL SULFATE\IPRATROPIUM BROMIDE
     Dosage: DOSE PER APPLICATION: 18 MCG / 103 MCG; FORMULATION: INHALATION AEROSOL
     Route: 055
     Dates: start: 2004, end: 2004
  3. PREDNISONE. [Concomitant]
     Active Substance: PREDNISONE
     Indication: ASPIRIN-EXACERBATED RESPIRATORY DISEASE
     Dosage: 20 MG
     Route: 048

REACTIONS (4)
  - Overdose [Unknown]
  - Visual impairment [Not Recovered/Not Resolved]
  - Off label use [Unknown]
  - Nervousness [Not Recovered/Not Resolved]

NARRATIVE: CASE EVENT DATE: 2004
